FAERS Safety Report 6026530-7 (Version None)
Quarter: 2008Q4

REPORT INFORMATION
  Report Type: 
  Country: None (occurrence: None)
  Receive Date: 20081222
  Receipt Date: 20081030
  Transmission Date: 20090506
  Serious: No
  Sender: FDA-Public Use
  Company Number: US-WYE-H06630408

PATIENT
  Age: 47 Year
  Sex: Female

DRUGS (1)
  1. PRISTIQ [Suspect]
     Indication: MENOPAUSAL SYMPTOMS
     Dosage: 50 MG 1X PER 1 DAY, ORAL
     Route: 048
     Dates: start: 20081015

REACTIONS (3)
  - ASTHENIA [None]
  - NERVOUSNESS [None]
  - SOMNOLENCE [None]
